FAERS Safety Report 21136002 (Version 1)
Quarter: 2022Q3

REPORT INFORMATION
  Report Type: Spontaneous
  Country: US (occurrence: US)
  Receive Date: 20220727
  Receipt Date: 20220727
  Transmission Date: 20221027
  Serious: Yes (Hospitalization, Other)
  Sender: FDA-Public Use
  Company Number: US-UNITED THERAPEUTICS-UNT-2022-016086

PATIENT
  Age: 60 Year
  Sex: Male

DRUGS (6)
  1. REMODULIN [Suspect]
     Active Substance: TREPROSTINIL
     Indication: Pulmonary arterial hypertension
     Dosage: UNK, CONTINUING
     Route: 058
     Dates: start: 2016
  2. REMODULIN [Suspect]
     Active Substance: TREPROSTINIL
     Indication: Rheumatoid arthritis
  3. MACITENTAN [Suspect]
     Active Substance: MACITENTAN
     Indication: Pulmonary arterial hypertension
     Dosage: UNK
     Route: 065
     Dates: start: 2016
  4. MACITENTAN [Suspect]
     Active Substance: MACITENTAN
     Indication: Rheumatoid arthritis
  5. RIOCIGUAT [Suspect]
     Active Substance: RIOCIGUAT
     Indication: Pulmonary arterial hypertension
     Dosage: UNK
     Route: 065
     Dates: start: 2016
  6. RIOCIGUAT [Suspect]
     Active Substance: RIOCIGUAT
     Indication: Rheumatoid arthritis

REACTIONS (7)
  - Right ventricular failure [Unknown]
  - Cardiorenal syndrome [Unknown]
  - Pericardial effusion [Unknown]
  - Cardiac tamponade [Unknown]
  - Condition aggravated [Not Recovered/Not Resolved]
  - Blood pressure systolic inspiratory decreased [Unknown]
  - Therapy non-responder [Unknown]
